FAERS Safety Report 10426170 (Version 2)
Quarter: 2014Q3

REPORT INFORMATION
  Report Type: Spontaneous
  Country: IN (occurrence: IN)
  Receive Date: 20140903
  Receipt Date: 20140915
  Transmission Date: 20150326
  Serious: Yes (Other)
  Sender: FDA-Public Use
  Company Number: IN-AUROBINDO-AUR-APL-2014-09372

PATIENT
  Age: 50 Year
  Sex: Female

DRUGS (2)
  1. ALPRAZOLAM TABLETS USP 0.5 MG [Suspect]
     Active Substance: ALPRAZOLAM
     Indication: HEAD DISCOMFORT
     Dosage: 0.5 MG, AT BED TIME
     Route: 065
  2. ALPRAZOLAM TABLETS USP 0.5 MG [Suspect]
     Active Substance: ALPRAZOLAM
     Indication: INSOMNIA
     Dosage: 20 DF, UNK
     Route: 065

REACTIONS (16)
  - Confusional state [Recovered/Resolved]
  - Restlessness [Recovered/Resolved]
  - Headache [Recovered/Resolved]
  - Insomnia [Recovered/Resolved]
  - Drug withdrawal syndrome [Recovered/Resolved]
  - Decreased appetite [Unknown]
  - Activities of daily living impaired [Recovered/Resolved]
  - Feeling jittery [Recovered/Resolved]
  - Intentional product misuse [Recovered/Resolved]
  - Drug dependence [Recovered/Resolved]
  - Discomfort [Recovered/Resolved]
  - Memory impairment [Recovered/Resolved]
  - Anxiety [Recovered/Resolved]
  - Drug ineffective [Recovered/Resolved]
  - Depression [Recovered/Resolved]
  - Soliloquy [Recovered/Resolved]
